FAERS Safety Report 11897897 (Version 1)
Quarter: 2016Q1

REPORT INFORMATION
  Report Type: Spontaneous
  Country: US (occurrence: US)
  Receive Date: 20160108
  Receipt Date: 20160108
  Transmission Date: 20160526
  Serious: Yes (Other)
  Sender: FDA-Public Use
  Company Number: US-BAYER-2016-003704

PATIENT
  Age: 81 Year
  Sex: Female

DRUGS (1)
  1. MIRALAX [Suspect]
     Active Substance: POLYETHYLENE GLYCOL 3350
     Indication: CONSTIPATION PROPHYLAXIS
     Dosage: EVERY DAY FOR A LONG TIME
     Route: 048

REACTIONS (5)
  - Skin haemorrhage [None]
  - Faeces hard [None]
  - Herpes zoster [None]
  - Swelling [None]
  - Product use issue [None]
